FAERS Safety Report 6907844-2 (Version None)
Quarter: 2010Q3

REPORT INFORMATION
  Report Type: 
  Country: None (occurrence: None)
  Receive Date: 20100727
  Receipt Date: 20100721
  Transmission Date: 20110219
  Serious: Yes (Death, Hospitalization)
  Sender: FDA-Public Use
  Company Number: DE-SANOFI-AVENTIS-2010SA000237

PATIENT
  Age: 73 Year
  Sex: Male
  Weight: 78 kg

DRUGS (5)
  1. DOCETAXEL [Suspect]
     Indication: PROSTATE CANCER
     Route: 041
     Dates: start: 20091013, end: 20091013
  2. DOCETAXEL [Suspect]
     Route: 041
     Dates: start: 20091208, end: 20091208
  3. DEXAMETHASONE [Concomitant]
     Indication: CHEMOTHERAPY
     Route: 048
     Dates: start: 20091203, end: 20091203
  4. DEXAMETHASONE [Concomitant]
     Route: 048
     Dates: start: 20091215, end: 20091215
  5. DEXAMETHASONE [Concomitant]
     Route: 048
     Dates: start: 20091001, end: 20091001

REACTIONS (3)
  - DYSPNOEA [None]
  - FATIGUE [None]
  - PNEUMOCYSTIS JIROVECI PNEUMONIA [None]
